FAERS Safety Report 4530712-0 (Version None)
Quarter: 2004Q4

REPORT INFORMATION
  Report Type: 
  Country: None (occurrence: None)
  Receive Date: 20041216
  Receipt Date: 20041202
  Transmission Date: 20050328
  Serious: Yes (Other)
  Sender: FDA-Public Use
  Company Number: 700473

PATIENT
  Age: 73 Year
  Sex: Male
  Weight: 62.2 kg

DRUGS (15)
  1. EXTRANEAL [Suspect]
     Indication: PERITONEAL DIALYSIS
     Dosage: 1.5 L; QD; INTRAPERITONEAL
     Route: 033
     Dates: start: 20040329
  2. DIANEAL PD-2 W/ DEXTROSE 2.5% IN PLASTIC CONTAINER [Suspect]
     Indication: PERITONEAL DIALYSIS
     Dosage: 2000 ML; INTRAPERITONEAL
     Route: 033
     Dates: start: 20040311
  3. DIANEAL [Concomitant]
  4. GUANABENZ ACETATE [Concomitant]
  5. TELMISARTAN [Concomitant]
  6. CILNIDIPINE [Concomitant]
  7. ALLOPURINOL [Concomitant]
  8. ATORVASTATIN CALCIUM HYDRATE [Concomitant]
  9. AMLODIPINE BESYLATE [Concomitant]
  10. D-CHLORPHENIRAMINE MALEATE [Concomitant]
  11. EPINASTINE HYDROCHLORIDE [Concomitant]
  12. GLIMEPIRIDE [Concomitant]
  13. EPOGEN [Concomitant]
  14. ALESION [Concomitant]
  15. SODIUM CHLORIDE [Concomitant]

REACTIONS (2)
  - DEPRESSED LEVEL OF CONSCIOUSNESS [None]
  - HYPONATRAEMIA [None]
